FAERS Safety Report 12082371 (Version 1)
Quarter: 2016Q1

REPORT INFORMATION
  Report Type: Spontaneous
  Country: US (occurrence: US)
  Receive Date: 20160217
  Receipt Date: 20160217
  Transmission Date: 20160526
  Serious: No
  Sender: FDA-Public Use
  Company Number: US-AMGEN-USASP2016017193

PATIENT
  Age: 40 Year
  Sex: Female

DRUGS (1)
  1. ENBREL [Suspect]
     Active Substance: ETANERCEPT
     Indication: RHEUMATOID ARTHRITIS
     Dosage: UNK
     Route: 065

REACTIONS (10)
  - Injection site irritation [Unknown]
  - Injection site pruritus [Unknown]
  - Injection site pain [Unknown]
  - Fatigue [Unknown]
  - Injection site bruising [Unknown]
  - Drug dose omission [Unknown]
  - Injection site erythema [Unknown]
  - Pain [Unknown]
  - Injection site haemorrhage [Unknown]
  - Injection site urticaria [Unknown]
